FAERS Safety Report 18420744 (Version 1)
Quarter: 2020Q4

REPORT INFORMATION
  Report Type: Spontaneous
  Country: US (occurrence: US)
  Receive Date: 20201023
  Receipt Date: 20201023
  Transmission Date: 20210114
  Serious: No
  Sender: FDA-Public Use
  Company Number: US-MERZ PHARMACEUTICALS GMBH-20-03646

PATIENT
  Sex: Male

DRUGS (1)
  1. XEOMIN [Suspect]
     Active Substance: INCOBOTULINUMTOXINA
     Indication: MIGRAINE
     Dates: start: 202008, end: 202008

REACTIONS (2)
  - Skin wrinkling [Unknown]
  - Off label use [Unknown]

NARRATIVE: CASE EVENT DATE: 2020
